FAERS Safety Report 7251706-0 (Version None)
Quarter: 2011Q1

REPORT INFORMATION
  Report Type: 
  Country: None (occurrence: None)
  Receive Date: 20110128
  Receipt Date: 20110119
  Transmission Date: 20110831
  Serious: Yes (Other)
  Sender: FDA-Public Use
  Company Number: US-RB-017076-10

PATIENT
  Age: 24 Year
  Sex: Male

DRUGS (2)
  1. SUBOXONE [Suspect]
     Indication: PRODUCT USED FOR UNKNOWN INDICATION
     Dosage: DOSING INFORMATION UNKNOWN
     Route: 065
  2. SUBOXONE [Suspect]
     Indication: PRODUCT USED FOR UNKNOWN INDICATION
     Dosage: DOSING INFORMATION UNKNOWN; SUBOXONE FILM
     Route: 065

REACTIONS (12)
  - DRUG WITHDRAWAL SYNDROME [None]
  - INTENTIONAL DRUG MISUSE [None]
  - VOMITING [None]
  - INSOMNIA [None]
  - DEHYDRATION [None]
  - MIGRAINE [None]
  - NAUSEA [None]
  - CONVULSION [None]
  - HEART RATE INCREASED [None]
  - GALLBLADDER DISORDER [None]
  - HAND FRACTURE [None]
  - DECREASED APPETITE [None]
